FAERS Safety Report 19855581 (Version 1)
Quarter: 2021Q3

REPORT INFORMATION
  Report Type: Spontaneous
  Country: US (occurrence: US)
  Receive Date: 20210920
  Receipt Date: 20210920
  Transmission Date: 20211014
  Serious: Yes (Death, Life-Threatening, Hospitalization, Disabling, Other)
  Sender: FDA-Public Use
  Company Number: None

PATIENT
  Age: 74 Year
  Sex: Male
  Weight: 104 kg

DRUGS (1)
  1. HEPARIN [Suspect]
     Active Substance: HEPARIN SODIUM
     Indication: CARDIOMYOPATHY
     Dosage: ?          OTHER FREQUENCY:PER HOUR;?
     Route: 041
     Dates: start: 20210915, end: 20210918

REACTIONS (3)
  - Subdural haematoma [None]
  - Pupils unequal [None]
  - Mental status changes [None]

NARRATIVE: CASE EVENT DATE: 20210918
